FAERS Safety Report 8816380 (Version 1)
Quarter: 2012Q4

REPORT INFORMATION
  Report Type: Spontaneous
  Country: US (occurrence: None)
  Receive Date: 20120928
  Receipt Date: 20120928
  Transmission Date: 20130627
  Serious: Yes (Hospitalization)
  Sender: FDA-Public Use
  Company Number: None

PATIENT
  Age: 74 Year
  Weight: 103.63 kg

DRUGS (12)
  1. PRADAX [Suspect]
     Indication: ATRIAL FIBRILLATION
     Dosage: chronic with recent restart
     Route: 048
  2. MULTAQ [Suspect]
     Indication: ATRIAL FIBRILLATION
     Dosage: chronic
     Route: 048
  3. ASA [Suspect]
     Indication: SURGERY
  4. GLUCOPHAGE [Concomitant]
  5. HYTRIN [Concomitant]
  6. LANTUS [Concomitant]
  7. PRAVACHOL [Concomitant]
  8. HYZAAR [Concomitant]
  9. AMLODIPINE [Concomitant]
  10. AMLODIPINE [Concomitant]
  11. MVI [Concomitant]
  12. OXYCODONE [Concomitant]

REACTIONS (2)
  - Haematuria [None]
  - Haemorrhagic anaemia [None]
